FAERS Safety Report 12012652 (Version 3)
Quarter: 2016Q1

REPORT INFORMATION
  Report Type: Spontaneous
  Country: US (occurrence: US)
  Receive Date: 20160205
  Receipt Date: 20160314
  Transmission Date: 20160526
  Serious: No
  Sender: FDA-Public Use
  Company Number: US-PFIZER INC-2016064124

PATIENT
  Age: 57 Year
  Sex: Female

DRUGS (2)
  1. IBRANCE [Suspect]
     Active Substance: PALBOCICLIB
     Dosage: 125 MG, CYCLIC (DAILY FOR 14 DAYS AND 7 DAYS OFF)
     Dates: start: 20160122
  2. FASLODEX [Concomitant]
     Active Substance: FULVESTRANT
     Dosage: UNK

REACTIONS (17)
  - Nausea [Unknown]
  - White blood cell count decreased [Unknown]
  - Red blood cell count decreased [Unknown]
  - Dyspnoea exertional [Unknown]
  - Urine odour abnormal [Unknown]
  - Platelet count decreased [Unknown]
  - Dysuria [Unknown]
  - Oedema peripheral [Recovered/Resolved]
  - Decreased appetite [Unknown]
  - Dyspnoea [Unknown]
  - Haemoglobin decreased [Unknown]
  - Dysphonia [Unknown]
  - Gingival disorder [Unknown]
  - Product use issue [Unknown]
  - Feeling abnormal [Unknown]
  - Oral pain [Unknown]
  - Blood creatinine decreased [Unknown]
